FAERS Safety Report 4316034-1 (Version None)
Quarter: 2004Q1

REPORT INFORMATION
  Report Type: 
  Country: None (occurrence: None)
  Receive Date: 20040311
  Receipt Date: 20040225
  Transmission Date: 20041129
  Serious: Yes (Other)
  Sender: FDA-Public Use
  Company Number: 2000-BP-02251

PATIENT
  Age: 24 Year
  Sex: Female

DRUGS (1)
  1. VIRAMUNE (TA) [Suspect]
     Indication: PROPHYLAXIS AGAINST HIV INFECTION
     Dosage: NR (200 MG, SINGLE DOSE) PO
     Route: 048
     Dates: start: 20001115, end: 20001115

REACTIONS (7)
  - ANAEMIA [None]
  - CAESAREAN SECTION [None]
  - CHILLS [None]
  - DIZZINESS [None]
  - HEADACHE [None]
  - INCISION SITE COMPLICATION [None]
  - VAGINAL HAEMORRHAGE [None]
